FAERS Safety Report 5581816-5 (Version None)
Quarter: 2008Q1

REPORT INFORMATION
  Report Type: 
  Country: None (occurrence: None)
  Receive Date: 20080104
  Receipt Date: 20071224
  Transmission Date: 20080703
  Serious: Yes (Other)
  Sender: FDA-Public Use
  Company Number: US-ELI_LILLY_AND_COMPANY-US200710007076

PATIENT
  Age: 48 Year
  Sex: Female

DRUGS (3)
  1. GEMZAR [Suspect]
     Indication: BREAST CANCER STAGE IV
     Dosage: 1250 MG/M2, DAY 1 + 8
     Dates: start: 20070321, end: 20070815
  2. GEMZAR [Suspect]
     Dosage: 1000 MG/M2, DAY 1 + 8
     Dates: start: 20070815, end: 20070101
  3. GEMZAR [Suspect]
     Dosage: 1930
     Dates: start: 20070101, end: 20071002

REACTIONS (4)
  - ANAEMIA [None]
  - HAEMOLYTIC URAEMIC SYNDROME [None]
  - RENAL FAILURE [None]
  - THROMBOTIC THROMBOCYTOPENIC PURPURA [None]
